FAERS Safety Report 4790394-X (Version None)
Quarter: 2005Q4

REPORT INFORMATION
  Report Type: 
  Country: None (occurrence: None)
  Receive Date: 20051005
  Receipt Date: 20050927
  Transmission Date: 20060501
  Serious: Yes (Other)
  Sender: FDA-Public Use
  Company Number: 142088USA

PATIENT
  Age: 44 Year
  Sex: Female
  Weight: 58.9676 kg

DRUGS (4)
  1. COPAXONE [Suspect]
     Indication: MULTIPLE SCLEROSIS
     Dates: start: 20000721
  2. LEXAPRO [Concomitant]
  3. VICODIN [Concomitant]
  4. AMANTADINE [Concomitant]

REACTIONS (11)
  - BACTERIAL INFECTION [None]
  - DEVICE FAILURE [None]
  - INFLAMMATION [None]
  - INJECTION SITE INFECTION [None]
  - INJECTION SITE NECROSIS [None]
  - INJECTION SITE ULCER [None]
  - NERVE INJURY [None]
  - SCAB [None]
  - SCAR [None]
  - SUBCUTANEOUS HAEMATOMA [None]
  - VASCULAR INJURY [None]
